FAERS Safety Report 12101243 (Version 4)
Quarter: 2016Q1

REPORT INFORMATION
  Report Type: Spontaneous
  Country: CA (occurrence: CA)
  Receive Date: 20160222
  Receipt Date: 20160304
  Transmission Date: 20160526
  Serious: Yes (Other)
  Sender: FDA-Public Use
  Company Number: CA-JNJFOC-20160216837

PATIENT
  Age: 8 Year
  Sex: Male

DRUGS (2)
  1. CONCERTA [Suspect]
     Active Substance: METHYLPHENIDATE HYDROCHLORIDE
     Indication: ATTENTION DEFICIT/HYPERACTIVITY DISORDER
     Route: 048
     Dates: start: 201503, end: 20160218
  2. MELATONIN [Suspect]
     Active Substance: MELATONIN
     Indication: SLEEP DISORDER THERAPY
     Route: 065

REACTIONS (9)
  - Decreased appetite [Unknown]
  - Weight gain poor [Unknown]
  - Insomnia [Unknown]
  - Eye movement disorder [Recovering/Resolving]
  - Disturbance in social behaviour [Not Recovered/Not Resolved]
  - Coeliac disease [Unknown]
  - Tonsillitis [Unknown]
  - Bronchitis [Unknown]
  - Hand-foot-and-mouth disease [Unknown]

NARRATIVE: CASE EVENT DATE: 201511
